FAERS Safety Report 6194715-5 (Version None)
Quarter: 2009Q2

REPORT INFORMATION
  Report Type: 
  Country: None (occurrence: None)
  Receive Date: 20090519
  Receipt Date: 20090513
  Transmission Date: 20091009
  Serious: Yes (Hospitalization)
  Sender: FDA-Public Use
  Company Number: FR-PFIZER INC-2009212352

PATIENT
  Age: 85 Year

DRUGS (7)
  1. AMLODIPINE BESYLATE [Suspect]
     Indication: HYPERTENSION
     Dosage: 10 MG, 1X/DAY
     Dates: start: 20080901
  2. KARDEGIC [Concomitant]
  3. NOVONORM [Concomitant]
     Dosage: 80 UNK, UNK
  4. FENOFIBRATE [Concomitant]
  5. SYMBICORT [Concomitant]
  6. GANFORT [Concomitant]
     Indication: GLAUCOMA
  7. NISIS [Concomitant]

REACTIONS (2)
  - LOSS OF CONSCIOUSNESS [None]
  - MALAISE [None]
